FAERS Safety Report 9816014 (Version 1)
Quarter: 2014Q1

REPORT INFORMATION
  Report Type: Spontaneous
  Country: US (occurrence: US)
  Receive Date: 20140114
  Receipt Date: 20140114
  Transmission Date: 20141002
  Serious: Yes (Death)
  Sender: FDA-Public Use
  Company Number: US-PFIZER INC-2014006538

PATIENT
  Age: 51 Year
  Sex: Female

DRUGS (9)
  1. GABAPENTIN [Suspect]
     Dosage: UNK
  2. DILTIAZEM [Suspect]
     Dosage: UNK
  3. METOPROLOL [Suspect]
     Dosage: UNK
  4. BUPROPION [Suspect]
     Dosage: UNK
  5. TRAMADOL [Suspect]
     Dosage: UNK
  6. OXCARBAZEPINE [Suspect]
     Dosage: UNK
  7. TRAZODONE [Suspect]
     Dosage: UNK
  8. TOPIRAMATE [Suspect]
     Dosage: UNK
  9. DIPHENHYDRAMINE [Suspect]
     Dosage: UNK

REACTIONS (1)
  - Completed suicide [Fatal]
